FAERS Safety Report 8991429 (Version 1)
Quarter: 2012Q4

REPORT INFORMATION
  Report Type: Report from Study
  Country: US (occurrence: US)
  Receive Date: 20121229
  Receipt Date: 20121229
  Transmission Date: 20130627
  Serious: Yes (Hospitalization, Disabling, Other)
  Sender: FDA-Public Use
  Company Number: US-US-EMD SERONO, INC.-7184004

PATIENT
  Sex: Female

DRUGS (2)
  1. REBIF [Suspect]
     Indication: MULTIPLE SCLEROSIS
     Route: 058
     Dates: start: 2004, end: 2009
  2. REBIF [Suspect]
     Route: 058
     Dates: start: 20100803, end: 20121115

REACTIONS (8)
  - Pulmonary embolism [Unknown]
  - Gait disturbance [Recovering/Resolving]
  - Multiple sclerosis relapse [Recovering/Resolving]
  - Convulsion [Unknown]
  - Urinary tract infection [Unknown]
  - Fractured coccyx [Unknown]
  - Memory impairment [Unknown]
  - Feeling cold [Unknown]
